FAERS Safety Report 7146371-7 (Version None)
Quarter: 2010Q4

REPORT INFORMATION
  Report Type: 
  Country: None (occurrence: None)
  Receive Date: 20101208
  Receipt Date: 20100111
  Transmission Date: 20110411
  Serious: No
  Sender: FDA-Public Use
  Company Number: US-BRISTOL-MYERS SQUIBB COMPANY-14928253

PATIENT
  Age: 87 Year
  Sex: Male
  Weight: 63 kg

DRUGS (10)
  1. PRAVACHOL [Suspect]
     Dates: start: 20091231
  2. SIMVASTATIN [Concomitant]
  3. LASIX [Concomitant]
  4. ADVAIR [Concomitant]
  5. SPIRIVA [Concomitant]
  6. LISINOPRIL [Concomitant]
  7. ISOSORBIDE DINITRATE [Concomitant]
  8. ASPIRIN [Concomitant]
  9. IRON [Concomitant]
  10. ANDROGEL [Concomitant]

REACTIONS (3)
  - ASTHENIA [None]
  - DECREASED APPETITE [None]
  - GAIT DISTURBANCE [None]
